FAERS Safety Report 5168187-3 (Version None)
Quarter: 2006Q4

REPORT INFORMATION
  Report Type: 
  Country: None (occurrence: None)
  Receive Date: 20061208
  Receipt Date: 20061117
  Transmission Date: 20070319
  Serious: Yes (Disabling)
  Sender: FDA-Public Use
  Company Number: DEWYE569417NOV06

PATIENT
  Sex: Female

DRUGS (4)
  1. ENBREL [Suspect]
     Indication: RHEUMATOID ARTHRITIS
     Route: 058
     Dates: start: 20040101
  2. METHOTREXATE SODIUM [Suspect]
     Indication: RHEUMATOID ARTHRITIS
     Dosage: 5 MG PER WEEK
     Route: 048
     Dates: start: 20040101, end: 20061001
  3. HUMIRA [Concomitant]
     Dosage: UNKNOWN
     Route: 058
     Dates: start: 20061101
  4. PREDNISOLONE [Concomitant]
     Indication: RHEUMATOID ARTHRITIS
     Dosage: 15 MG PER DAY
     Route: 048
     Dates: start: 20060501

REACTIONS (6)
  - BALANCE DISORDER [None]
  - DEAFNESS [None]
  - DIZZINESS [None]
  - DRUG INEFFECTIVE [None]
  - MULTIPLE SCLEROSIS [None]
  - VISION BLURRED [None]
